FAERS Safety Report 8220695-4 (Version None)
Quarter: 2012Q1

REPORT INFORMATION
  Report Type: 
  Country: None (occurrence: None)
  Receive Date: 20120320
  Receipt Date: 20120313
  Transmission Date: 20120608
  Serious: Yes (Other)
  Sender: FDA-Public Use
  Company Number: GB-COVIDIEN/TYCO HEALTHCARE/MALLINCKRODT-T201200709

PATIENT
  Sex: Male

DRUGS (2)
  1. OPTIRAY 160 [Suspect]
     Indication: COMPUTERISED TOMOGRAM
     Dosage: 96 ML, SINGLE
     Route: 042
     Dates: start: 20120215, end: 20120215
  2. E-Z-CAT [Concomitant]
     Route: 048

REACTIONS (1)
  - HYPERSENSITIVITY [None]
